FAERS Safety Report 8829930 (Version 2)
Quarter: 2013Q1

REPORT INFORMATION
  Report Type: Spontaneous
  Country: US (occurrence: US)
  Receive Date: 20121008
  Receipt Date: 20130214
  Transmission Date: 20140127
  Serious: Yes (Death)
  Sender: FDA-Public Use
  Company Number: US-ROCHE-1097003

PATIENT
  Sex: Female

DRUGS (2)
  1. RITUXAN [Suspect]
     Indication: WALDENSTROM^S MACROGLOBULINAEMIA
     Route: 065
  2. RITUXAN [Suspect]
     Indication: OFF LABEL USE

REACTIONS (4)
  - Death [Fatal]
  - Malaise [Unknown]
  - Blood immunoglobulin M increased [Unknown]
  - Fatigue [Unknown]
